FAERS Safety Report 19372601 (Version 2)
Quarter: 2022Q2

REPORT INFORMATION
  Report Type: Report from Study
  Country: FR (occurrence: FR)
  Receive Date: 20210603
  Receipt Date: 20220526
  Transmission Date: 20220721
  Serious: Yes (Hospitalization, Other)
  Sender: FDA-Public Use
  Company Number: FR-TAKEDA-2021TUS033480

PATIENT
  Age: 74 Year
  Sex: Female

DRUGS (22)
  1. TEDUGLUTIDE [Suspect]
     Active Substance: TEDUGLUTIDE
     Indication: Product used for unknown indication
     Dosage: 3.400 MILLIGRAM
     Route: 065
     Dates: start: 20160628, end: 20190711
  2. TEDUGLUTIDE [Suspect]
     Active Substance: TEDUGLUTIDE
     Indication: Product used for unknown indication
     Dosage: 3.400 MILLIGRAM
     Route: 065
     Dates: start: 20160628, end: 20190711
  3. TEDUGLUTIDE [Suspect]
     Active Substance: TEDUGLUTIDE
     Indication: Product used for unknown indication
     Dosage: 3.400 MILLIGRAM
     Route: 065
     Dates: start: 20160628, end: 20190711
  4. TEDUGLUTIDE [Suspect]
     Active Substance: TEDUGLUTIDE
     Indication: Product used for unknown indication
     Dosage: 3.400 MILLIGRAM
     Route: 065
     Dates: start: 20160628, end: 20190711
  5. TEDUGLUTIDE [Suspect]
     Active Substance: TEDUGLUTIDE
     Dosage: 3.600 MILLIGRAM
     Route: 065
     Dates: start: 20190712, end: 20191209
  6. TEDUGLUTIDE [Suspect]
     Active Substance: TEDUGLUTIDE
     Dosage: 3.600 MILLIGRAM
     Route: 065
     Dates: start: 20190712, end: 20191209
  7. TEDUGLUTIDE [Suspect]
     Active Substance: TEDUGLUTIDE
     Dosage: 3.600 MILLIGRAM
     Route: 065
     Dates: start: 20190712, end: 20191209
  8. TEDUGLUTIDE [Suspect]
     Active Substance: TEDUGLUTIDE
     Dosage: 3.600 MILLIGRAM
     Route: 065
     Dates: start: 20190712, end: 20191209
  9. TEDUGLUTIDE [Suspect]
     Active Substance: TEDUGLUTIDE
     Dosage: 3.400 MILLIGRAM
     Route: 065
     Dates: start: 20191210
  10. TEDUGLUTIDE [Suspect]
     Active Substance: TEDUGLUTIDE
     Dosage: 3.400 MILLIGRAM
     Route: 065
     Dates: start: 20191210
  11. TEDUGLUTIDE [Suspect]
     Active Substance: TEDUGLUTIDE
     Dosage: 3.400 MILLIGRAM
     Route: 065
     Dates: start: 20191210
  12. TEDUGLUTIDE [Suspect]
     Active Substance: TEDUGLUTIDE
     Dosage: 3.400 MILLIGRAM
     Route: 065
     Dates: start: 20191210
  13. FOSFOMYCIN TROMETHAMINE [Concomitant]
     Active Substance: FOSFOMYCIN TROMETHAMINE
     Indication: Urinary tract infection
     Dosage: 1 UNIT, 1/WEEK
     Route: 048
     Dates: start: 20200213
  14. CLINDAMYCIN [Concomitant]
     Active Substance: CLINDAMYCIN
     Indication: Infection
     Dosage: 600 MILLIGRAM, TID
     Route: 048
     Dates: start: 20200205, end: 20200212
  15. PIPERACILLIN SODIUM\TAZOBACTAM SODIUM [Concomitant]
     Active Substance: PIPERACILLIN SODIUM\TAZOBACTAM SODIUM
     Indication: Infection
     Dosage: 4, TID
     Route: 065
     Dates: start: 20200205, end: 20200212
  16. AMIKACIN [Concomitant]
     Active Substance: AMIKACIN
     Indication: Infection
     Dosage: 1.50 GRAM
     Route: 065
     Dates: start: 20200210, end: 20200212
  17. TERIPARATIDE [Concomitant]
     Active Substance: TERIPARATIDE
     Indication: Osteoporosis
     Dosage: 1 DOSAGE FORM, QD
     Route: 065
  18. STEROGYL [Concomitant]
     Active Substance: ERGOCALCIFEROL
     Indication: Vitamin D deficiency
     Dosage: 1 DOSAGE FORM, Q4MONTHS
     Route: 065
  19. EUPANTOL [Concomitant]
     Active Substance: PANTOPRAZOLE SODIUM
     Indication: Gastrooesophageal reflux disease
     Dosage: 40 MILLIGRAM, QD
     Route: 065
  20. BROMAZEPAM [Concomitant]
     Active Substance: BROMAZEPAM
     Indication: Anxiety
     Dosage: 1.5 MILLIGRAM, QD
     Route: 065
  21. IMODIUM [Concomitant]
     Active Substance: LOPERAMIDE HYDROCHLORIDE
     Indication: Diarrhoea
     Dosage: 10 MILLILITER, TID
     Route: 065
  22. MAGNESIUM [Concomitant]
     Active Substance: MAGNESIUM
     Indication: Magnesium deficiency
     Dosage: 1 DOSAGE FORM, TID
     Route: 065

REACTIONS (1)
  - Myelodysplastic syndrome [Not Recovered/Not Resolved]

NARRATIVE: CASE EVENT DATE: 20190116
